FAERS Safety Report 14546978 (Version 3)
Quarter: 2022Q1

REPORT INFORMATION
  Report Type: Report from Study
  Country: US (occurrence: None)
  Receive Date: 20180219
  Receipt Date: 20220307
  Transmission Date: 20220423
  Serious: Yes (Hospitalization)
  Sender: FDA-Public Use
  Company Number: US-ROCHE-2069870

PATIENT
  Age: 27 Year
  Sex: Female
  Weight: 76.726 kg

DRUGS (12)
  1. ATEZOLIZUMAB [Suspect]
     Active Substance: ATEZOLIZUMAB
     Indication: Breast cancer metastatic
     Dosage: MOST RECENT DOSE RECEIVED ON 22/JAN/2018
     Route: 041
     Dates: start: 20180103
  2. PERTUZUMAB [Suspect]
     Active Substance: PERTUZUMAB
     Indication: Breast cancer metastatic
     Dosage: MOST RECENT DOSE RECEIVED ON 22/JAN/2018
     Route: 041
     Dates: start: 20180103
  3. TRASTUZUMAB [Suspect]
     Active Substance: TRASTUZUMAB
     Indication: Breast cancer metastatic
     Dosage: MOST RECENT DOSE RECEIVED ON 22/JAN/2018
     Route: 041
     Dates: start: 20180103
  4. PACLITAXEL [Suspect]
     Active Substance: PACLITAXEL
     Indication: Breast cancer metastatic
     Dosage: MOST RECENT DOSE RECEIVED ON 22/JAN/2018
     Route: 042
     Dates: start: 20180103
  5. XANAX [Concomitant]
     Active Substance: ALPRAZOLAM
  6. FERROUS SULFATE [Concomitant]
     Active Substance: FERROUS SULFATE
  7. LACTOBACILLUS ACIDOPHILUS\LACTOBACILLUS DELBRUECKII SUBSP. BULGARICUS [Concomitant]
     Active Substance: LACTOBACILLUS ACIDOPHILUS\LACTOBACILLUS DELBRUECKII SUBSP. BULGARICUS
  8. TYLENOL [Concomitant]
     Active Substance: ACETAMINOPHEN
  9. ZOFRAN [Concomitant]
     Active Substance: ONDANSETRON HYDROCHLORIDE
  10. CLARITIN [Concomitant]
     Active Substance: LORATADINE
  11. IMODIUM [Concomitant]
     Active Substance: LOPERAMIDE HYDROCHLORIDE
  12. VITAMIN C [Concomitant]
     Active Substance: ASCORBIC ACID

REACTIONS (3)
  - Pneumonia [Recovered/Resolved]
  - Pyrexia [Recovered/Resolved]
  - Neutropenia [Recovered/Resolved]

NARRATIVE: CASE EVENT DATE: 20180127
